FAERS Safety Report 8678706 (Version 3)
Quarter: 2012Q4

REPORT INFORMATION
  Report Type: 
  Country: US (occurrence: US)
  Receive Date: 20120723
  Receipt Date: 20121127
  Transmission Date: 20130627
  Serious: Yes (Hospitalization, Other)
  Sender: FDA-Public Use
  Company Number: US-ELI_LILLY_AND_COMPANY-US201207004303

PATIENT
  Sex: Female

DRUGS (2)
  1. BYETTA [Suspect]
     Indication: TYPE 2 DIABETES MELLITUS
     Dosage: UNK UNK, unknown
     Route: 058
     Dates: end: 201205
  2. BYETTA [Suspect]
     Dosage: UNK, unknown
     Route: 058

REACTIONS (1)
  - Colitis ulcerative [Recovered/Resolved]
